FAERS Safety Report 6131925-7 (Version None)
Quarter: 2009Q1

REPORT INFORMATION
  Report Type: 
  Country: None (occurrence: None)
  Receive Date: 20090325
  Receipt Date: 20090320
  Transmission Date: 20090719
  Serious: Yes (Hospitalization)
  Sender: FDA-Public Use
  Company Number: FR-PFIZER INC-2009187473

PATIENT

DRUGS (2)
  1. CELEBREX [Suspect]
     Indication: ARTHRALGIA
     Route: 048
     Dates: start: 20090218, end: 20090228
  2. ART 50 [Suspect]
     Indication: ARTHRALGIA
     Route: 048
     Dates: start: 20090218, end: 20090228

REACTIONS (3)
  - CYTOLYTIC HEPATITIS [None]
  - PYREXIA [None]
  - RASH MACULO-PAPULAR [None]
